FAERS Safety Report 17751183 (Version 1)
Quarter: 2020Q2

REPORT INFORMATION
  Report Type: Spontaneous
  Country: CA (occurrence: CA)
  Receive Date: 20200506
  Receipt Date: 20200506
  Transmission Date: 20200714
  Serious: Yes (Hospitalization)
  Sender: FDA-Public Use
  Company Number: CA-PFIZER INC-2020180954

PATIENT
  Age: 64 Year
  Sex: Male

DRUGS (4)
  1. BACTERIOSTATIC SODIUM CHLORIDE [Suspect]
     Active Substance: SODIUM CHLORIDE
     Indication: HYPOMAGNESAEMIA
     Dosage: 500 MG, 1X/DAY
     Route: 042
  2. SODIUM PHOSPHATE [Suspect]
     Active Substance: SODIUM PHOSPHATE
     Indication: HYPOMAGNESAEMIA
  3. MAGNESIUM SULFATE. [Suspect]
     Active Substance: MAGNESIUM SULFATE
     Indication: HYPOMAGNESAEMIA
     Dosage: 2000 MG, 1X/DAY
     Route: 042
  4. SODIUM PHOSPHATE [Suspect]
     Active Substance: SODIUM PHOSPHATE
     Indication: HYPONATRAEMIA
     Dosage: 15 MMOL, 1X/DAY
     Route: 042

REACTIONS (2)
  - Palpitations [Unknown]
  - Dyspnoea [Unknown]
